FAERS Safety Report 9008614 (Version 1)
Quarter: 2013Q1

REPORT INFORMATION
  Report Type: Spontaneous
  Country: US (occurrence: US)
  Receive Date: 20130111
  Receipt Date: 20130111
  Transmission Date: 20140127
  Serious: No
  Sender: FDA-Public Use
  Company Number: US-ASTRAZENECA-2013SE01377

PATIENT
  Age: 63 Year
  Sex: Female
  Weight: 77.1 kg

DRUGS (10)
  1. TOPROL XL [Suspect]
     Indication: HYPERTENSION
     Route: 048
     Dates: start: 2012, end: 2012
  2. TOPROL XL [Suspect]
     Indication: HYPERTENSION
     Dosage: GENERIC, 25 MG, TWO TIMES A DAY
     Route: 048
     Dates: start: 2012
  3. TOPROL XL [Suspect]
     Indication: HYPERTENSION
     Route: 048
     Dates: start: 2003
  4. PRILOSEC [Suspect]
     Indication: GASTROOESOPHAGEAL REFLUX DISEASE
     Route: 048
  5. CRESTOR [Suspect]
     Indication: BLOOD CHOLESTEROL INCREASED
     Route: 048
  6. VIT D [Concomitant]
  7. HYDROCHLOROTHIAZIDE [Concomitant]
     Indication: HYPERTENSION
  8. LEXAPRO [Concomitant]
     Indication: BLOOD PRESSURE ABNORMAL
  9. PROMETRIUM [Concomitant]
     Indication: HOT FLUSH
  10. PREMARIN [Concomitant]

REACTIONS (9)
  - Hot flush [Unknown]
  - Palpitations [Recovered/Resolved]
  - Depression [Recovered/Resolved]
  - Dizziness [Recovered/Resolved]
  - Abdominal discomfort [Recovered/Resolved]
  - Headache [Recovered/Resolved]
  - Insomnia [Recovered/Resolved]
  - Drug ineffective [Recovered/Resolved]
  - Blood pressure increased [Recovered/Resolved]
